FAERS Safety Report 20182526 (Version 1)
Quarter: 2021Q4

REPORT INFORMATION
  Report Type: Spontaneous
  Country: US (occurrence: None)
  Receive Date: 20211214
  Receipt Date: 20211214
  Transmission Date: 20220303
  Serious: Yes (Life-Threatening, Hospitalization)
  Sender: FDA-Public Use
  Company Number: None

PATIENT
  Age: 77 Year
  Sex: Female
  Weight: 61 kg

DRUGS (5)
  1. RITUXIMAB-ABBS [Suspect]
     Active Substance: RITUXIMAB-ABBS
     Indication: Immune thrombocytopenia
     Dosage: OTHER FREQUENCY : WEEKLY;?
     Route: 041
     Dates: start: 20211203, end: 20211203
  2. ASPIRIN [Concomitant]
     Active Substance: ASPIRIN
  3. furosemide 20mg daily [Concomitant]
  4. metoprolol 25mg BID [Concomitant]
  5. Prednisone 50mg daily [Concomitant]

REACTIONS (8)
  - Infusion related reaction [None]
  - Nausea [None]
  - Hyperhidrosis [None]
  - Chest discomfort [None]
  - Back pain [None]
  - Acute myocardial infarction [None]
  - Acute coronary syndrome [None]
  - Vasospasm [None]

NARRATIVE: CASE EVENT DATE: 20211203
